FAERS Safety Report 7187013-4 (Version None)
Quarter: 2010Q4

REPORT INFORMATION
  Report Type: 
  Country: None (occurrence: None)
  Receive Date: 20101222
  Receipt Date: 20100721
  Transmission Date: 20110411
  Serious: No
  Sender: FDA-Public Use
  Company Number: US-AMGEN-KDL417693

PATIENT

DRUGS (4)
  1. ENBREL [Suspect]
     Indication: PSORIASIS
     Dosage: 50 MG, 2 TIMES/WK
     Route: 058
     Dates: start: 20100526
  2. ATENOLOL [Concomitant]
  3. SIMVASTATIN [Concomitant]
  4. DIPHENHYDRAMINE HYDROCHLORIDE [Concomitant]

REACTIONS (6)
  - HEADACHE [None]
  - INFLUENZA LIKE ILLNESS [None]
  - INJECTION SITE REACTION [None]
  - MUSCLE FATIGUE [None]
  - NAUSEA [None]
  - PAIN [None]
